FAERS Safety Report 8193945-0 (Version None)
Quarter: 2012Q1

REPORT INFORMATION
  Report Type: 
  Country: None (occurrence: None)
  Receive Date: 20120308
  Receipt Date: 20120223
  Transmission Date: 20120608
  Serious: Yes (Hospitalization, Other)
  Sender: FDA-Public Use
  Company Number: GB-JNJFOC-20120303629

PATIENT
  Age: 83 Year
  Sex: Female

DRUGS (5)
  1. ACETAMINOPHEN [Suspect]
     Indication: PRODUCT USED FOR UNKNOWN INDICATION
     Route: 065
  2. FLUCLOXACILLIN [Suspect]
     Indication: WOUND INFECTION
     Route: 042
  3. IRBESARTAN [Concomitant]
  4. ACETAMINOPHEN [Suspect]
     Route: 065
  5. METFORMIN HCL [Concomitant]

REACTIONS (1)
  - METABOLIC ACIDOSIS [None]
